FAERS Safety Report 7676250-8 (Version None)
Quarter: 2011Q3

REPORT INFORMATION
  Report Type: 
  Country: None (occurrence: None)
  Receive Date: 20110811
  Receipt Date: 20110526
  Transmission Date: 20111222
  Serious: No
  Sender: FDA-Public Use
  Company Number: US-BAYER-2011-046673

PATIENT
  Sex: Male

DRUGS (3)
  1. INDERAL [Concomitant]
  2. CIPROFLOXACIN HCL [Suspect]
  3. FLOMAX [Concomitant]

REACTIONS (1)
  - DIZZINESS [None]
